FAERS Safety Report 5482933-0 (Version None)
Quarter: 2007Q4

REPORT INFORMATION
  Report Type: 
  Country: None (occurrence: None)
  Receive Date: 20071011
  Receipt Date: 20071009
  Transmission Date: 20080405
  Serious: Yes (Hospitalization)
  Sender: FDA-Public Use
  Company Number: DE-SANOFI-SYNTHELABO-A04200701349

PATIENT
  Sex: Female
  Weight: 89 kg

DRUGS (10)
  1. ELOXATIN [Suspect]
     Indication: GASTROINTESTINAL CARCINOMA
     Dosage: 160 MG
     Route: 041
     Dates: start: 20070731, end: 20070731
  2. ENOXAPARIN SODIUM [Concomitant]
     Indication: DRUG USE FOR UNKNOWN INDICATION
     Dosage: UNK
     Route: 065
  3. CLIONARA [Concomitant]
     Indication: DRUG USE FOR UNKNOWN INDICATION
     Dosage: UNK
     Route: 065
  4. ASPIRIN [Concomitant]
     Indication: DRUG USE FOR UNKNOWN INDICATION
     Dosage: UNK
     Route: 065
  5. METFORMIN HCL [Concomitant]
     Indication: DIABETES MELLITUS
     Dosage: UNK
     Route: 065
  6. KARVEZIDE [Concomitant]
     Indication: DRUG USE FOR UNKNOWN INDICATION
     Dosage: UNK
     Route: 065
  7. METOPROLOL TARTRATE [Concomitant]
     Indication: DRUG USE FOR UNKNOWN INDICATION
     Dosage: UNK
     Route: 065
  8. KEVATRIL [Concomitant]
     Indication: PROPHYLAXIS
     Dosage: 1 MG
     Route: 042
     Dates: start: 20070731, end: 20070731
  9. SODIUM FOLINATE [Concomitant]
     Indication: GASTROINTESTINAL CARCINOMA
     Dosage: 950 MG
     Route: 042
     Dates: start: 20070731, end: 20070801
  10. FLUOROURACIL [Concomitant]
     Indication: GASTROINTESTINAL CARCINOMA
     Dosage: 3800 MG
     Route: 042
     Dates: start: 20070731, end: 20070801

REACTIONS (11)
  - ANOREXIA [None]
  - COUGH [None]
  - DYSPNOEA [None]
  - GENERAL PHYSICAL HEALTH DETERIORATION [None]
  - HEPATITIS CHOLESTATIC [None]
  - HOT FLUSH [None]
  - JAUNDICE [None]
  - NAUSEA [None]
  - TACHYCARDIA [None]
  - VOMITING [None]
  - WEIGHT DECREASED [None]
